FAERS Safety Report 14825964 (Version 2)
Quarter: 2018Q2

REPORT INFORMATION
  Report Type: Spontaneous
  Country: US (occurrence: US)
  Receive Date: 20180430
  Receipt Date: 20180524
  Transmission Date: 20180711
  Serious: No
  Sender: FDA-Public Use
  Company Number: US-JNJFOC-20180419047

PATIENT
  Sex: Male

DRUGS (3)
  1. INVOKANA [Suspect]
     Active Substance: CANAGLIFLOZIN
     Indication: PRODUCT USED FOR UNKNOWN INDICATION
     Dosage: TOOK EXTRA DOSE OF 300 MG
     Route: 048
  2. NIACIN. [Concomitant]
     Active Substance: NIACIN
     Indication: HIGH DENSITY LIPOPROTEIN ABNORMAL
     Route: 065
  3. INVOKANA [Suspect]
     Active Substance: CANAGLIFLOZIN
     Indication: PRODUCT USED FOR UNKNOWN INDICATION
     Dosage: 300 MG CUSTOMIZED TO 150 MG DOSE
     Route: 048

REACTIONS (6)
  - Extra dose administered [Unknown]
  - Incorrect dose administered [Unknown]
  - Product label issue [Unknown]
  - Wrong technique in product usage process [Unknown]
  - Inappropriate schedule of drug administration [Unknown]
  - Hypotension [Unknown]
